FAERS Safety Report 10744665 (Version 1)
Quarter: 2015Q1

REPORT INFORMATION
  Report Type: Spontaneous
  Country: US (occurrence: US)
  Receive Date: 20150128
  Receipt Date: 20150128
  Transmission Date: 20150721
  Serious: No
  Sender: FDA-Public Use
  Company Number: US-BAYER-2015-010626

PATIENT
  Sex: Male

DRUGS (1)
  1. FINACEA [Suspect]
     Active Substance: AZELAIC ACID
     Indication: DERMATITIS
     Dosage: UNK
     Dates: start: 20150117

REACTIONS (2)
  - Application site irritation [None]
  - Product use issue [Not Recovered/Not Resolved]
